FAERS Safety Report 9491909 (Version 5)
Quarter: 2013Q4

REPORT INFORMATION
  Report Type: Spontaneous
  Country: TR (occurrence: TR)
  Receive Date: 20130830
  Receipt Date: 20131113
  Transmission Date: 20140711
  Serious: No
  Sender: FDA-Public Use
  Company Number: TR-SANOFI-AVENTIS-2013SA083422

PATIENT
  Sex: Female
  Weight: 86 kg

DRUGS (8)
  1. ARAVA [Suspect]
     Indication: RHEUMATOID ARTHRITIS
     Route: 048
     Dates: start: 2012, end: 20130815
  2. MAJEZIK [Concomitant]
     Indication: RHEUMATOID ARTHRITIS
     Dosage: STARTED 1 TO 2 YEAR AGO
     Route: 048
     Dates: end: 20130815
  3. PREDNOL [Concomitant]
     Indication: RHEUMATOID ARTHRITIS
     Route: 048
     Dates: start: 2003
  4. SALAZOPYRIN [Concomitant]
     Indication: RHEUMATOID ARTHRITIS
     Route: 048
     Dates: start: 2003
  5. FERRUM HAUSMANN FORT [Concomitant]
     Indication: ANAEMIA
     Route: 048
     Dates: start: 2013, end: 20130815
  6. GLIFOR [Concomitant]
     Indication: DIABETES MELLITUS
     Route: 048
     Dates: start: 2012, end: 20130815
  7. AMOXICILLIN/CLAVULANATE POTASSIUM [Concomitant]
     Indication: UPPER RESPIRATORY TRACT INFECTION
     Route: 048
     Dates: end: 20130815
  8. TERBISIL [Concomitant]
     Indication: TINEA MANUUM
     Route: 048
     Dates: start: 2013, end: 20130815

REACTIONS (1)
  - Exposure during pregnancy [Unknown]
